FAERS Safety Report 6530921-5 (Version None)
Quarter: 2010Q1

REPORT INFORMATION
  Report Type: 
  Country: None (occurrence: None)
  Receive Date: 20100108
  Receipt Date: 20090616
  Transmission Date: 20100710
  Serious: No
  Sender: FDA-Public Use
  Company Number: A0789102A

PATIENT
  Age: 57 Year
  Sex: Female
  Weight: 77.3 kg

DRUGS (1)
  1. LOVAZA [Suspect]
     Indication: LIPIDS
     Dosage: 1G PER DAY
     Route: 048
     Dates: start: 20090101

REACTIONS (1)
  - ABDOMINAL DISTENSION [None]
